FAERS Safety Report 26079808 (Version 1)
Quarter: 2025Q4

REPORT INFORMATION
  Report Type: Spontaneous
  Country: US (occurrence: US)
  Receive Date: 20251123
  Receipt Date: 20251123
  Transmission Date: 20260117
  Serious: No
  Sender: TAKEDA
  Company Number: US-TAKEDA-2025TUS103462

PATIENT

DRUGS (1)
  1. VYVANSE [Suspect]
     Active Substance: LISDEXAMFETAMINE DIMESYLATE
     Indication: Product used for unknown indication
     Dosage: UNK

REACTIONS (5)
  - Product taste abnormal [Unknown]
  - Disturbance in attention [Unknown]
  - Influenza like illness [Unknown]
  - Product availability issue [Unknown]
  - Headache [Unknown]
